FAERS Safety Report 20289398 (Version 4)
Quarter: 2025Q3

REPORT INFORMATION
  Report Type: Spontaneous
  Country: US (occurrence: US)
  Receive Date: 20220104
  Receipt Date: 20250826
  Transmission Date: 20251021
  Serious: Yes (Death)
  Sender: TEVA
  Company Number: US-TEVA-2022-US-1996831

PATIENT
  Age: 66 Year
  Sex: Male
  Weight: 54.43 kg

DRUGS (12)
  1. AMLODIPINE\VALSARTAN [Suspect]
     Active Substance: AMLODIPINE\VALSARTAN
     Indication: Hypertension
     Route: 065
     Dates: start: 201507, end: 20180718
  2. LOSARTAN [Suspect]
     Active Substance: LOSARTAN
     Indication: Product used for unknown indication
     Route: 065
  3. ZETIA [Concomitant]
     Active Substance: EZETIMIBE
     Indication: Hyperlipidaemia
     Route: 048
     Dates: start: 2010, end: 20210803
  4. CELEBREX [Concomitant]
     Active Substance: CELECOXIB
     Indication: Arthritis
     Route: 048
     Dates: start: 2010, end: 20210803
  5. ANDRODERM [Concomitant]
     Active Substance: TESTOSTERONE
     Indication: Erectile dysfunction
     Route: 062
     Dates: start: 201207, end: 201612
  6. PANTOPRAZOLE [Concomitant]
     Active Substance: PANTOPRAZOLE
     Indication: Gastrooesophageal reflux disease
     Route: 065
     Dates: start: 201903, end: 20210803
  7. ESOMEPRAZOLE [Concomitant]
     Active Substance: ESOMEPRAZOLE
     Indication: Gastrooesophageal reflux disease
     Route: 065
     Dates: start: 201908, end: 20191003
  8. TESTOSTERONE [Concomitant]
     Active Substance: TESTOSTERONE
     Indication: Erectile dysfunction
     Dosage: DOSAGE TEXT: 20.25MG/1.25 MG
     Route: 065
     Dates: start: 201906, end: 201909
  9. STENDRA [Concomitant]
     Active Substance: AVANAFIL
     Indication: Erectile dysfunction
     Route: 065
     Dates: start: 201906, end: 201912
  10. EXFORGE [Suspect]
     Active Substance: AMLODIPINE BESYLATE\VALSARTAN
     Indication: Hypertension
     Route: 065
     Dates: end: 201503
  11. AMLODIPINE\VALSARTAN [Suspect]
     Active Substance: AMLODIPINE\VALSARTAN
     Indication: Hypertension
     Route: 065
     Dates: start: 201411, end: 201507
  12. AMLODIPINE\VALSARTAN [Suspect]
     Active Substance: AMLODIPINE\VALSARTAN
     Indication: Hypertension
     Route: 065
     Dates: start: 20180718, end: 20200404

REACTIONS (1)
  - Pancreatic carcinoma [Fatal]
